FAERS Safety Report 7530552-4 (Version None)
Quarter: 2011Q2

REPORT INFORMATION
  Report Type: 
  Country: None (occurrence: None)
  Receive Date: 20110607
  Receipt Date: 20110526
  Transmission Date: 20111010
  Serious: Yes (Hospitalization)
  Sender: FDA-Public Use
  Company Number: US-ASTRAZENECA-2011SE32319

PATIENT
  Age: 58 Year
  Sex: Male

DRUGS (6)
  1. VANDETANIB [Suspect]
     Route: 048
     Dates: start: 20110505
  2. AMBIEN CR [Concomitant]
  3. OXYCODONE HCL [Concomitant]
  4. SYNTHROID [Concomitant]
  5. VANDETANIB [Suspect]
     Route: 048
     Dates: start: 20110513
  6. FENTANYL [Concomitant]

REACTIONS (3)
  - INTESTINAL OBSTRUCTION [None]
  - DIARRHOEA [None]
  - CHEST DISCOMFORT [None]
